FAERS Safety Report 14300973 (Version 1)
Quarter: 2017Q4

REPORT INFORMATION
  Report Type: Spontaneous
  Country: US (occurrence: US)
  Receive Date: 20171218
  Receipt Date: 20171218
  Transmission Date: 20180321
  Serious: No
  Sender: FDA-Public Use
  Company Number: None

PATIENT
  Sex: Female

DRUGS (1)
  1. FORTEO [Suspect]
     Active Substance: TERIPARATIDE
     Dosage: 20 MCG DAILY SQ   08/02/2017 TO CURRENTLY ON HOLD BY PT??
     Route: 058
     Dates: start: 20170802

REACTIONS (5)
  - Lethargy [None]
  - Asthenia [None]
  - Bone pain [None]
  - Sinusitis [None]
  - Myalgia [None]
